FAERS Safety Report 7322565-2 (Version None)
Quarter: 2011Q1

REPORT INFORMATION
  Report Type: 
  Country: None (occurrence: None)
  Receive Date: 20110215
  Receipt Date: 20110201
  Transmission Date: 20110831
  Serious: Yes (Other)
  Sender: FDA-Public Use
  Company Number: 2011SP004953

PATIENT
  Age: 45 Year
  Sex: Female
  Weight: 99 kg

DRUGS (2)
  1. IMPLANON [Suspect]
     Indication: CONTRACEPTION
     Dosage: 68 MCG
     Dates: start: 20110105, end: 20110117
  2. LIDOCAINE [Concomitant]

REACTIONS (3)
  - IMPLANT SITE RASH [None]
  - IMPLANT SITE PRURITUS [None]
  - IMPLANT SITE ERYTHEMA [None]
